FAERS Safety Report 10744254 (Version 2)
Quarter: 2015Q1

REPORT INFORMATION
  Report Type: Spontaneous
  Country: US (occurrence: US)
  Receive Date: 20150128
  Receipt Date: 20150129
  Transmission Date: 20150721
  Serious: No
  Sender: FDA-Public Use
  Company Number: US-009507513-1501USA010404

PATIENT
  Age: 29 Year
  Sex: Female
  Weight: 86.17 kg

DRUGS (2)
  1. DICLOFENAC [Concomitant]
     Active Substance: DICLOFENAC
  2. NEXPLANON [Suspect]
     Active Substance: ETONOGESTREL
     Indication: CONTRACEPTION
     Dosage: 1 IMPLANT/ 3 YEARS, ROUTE: RIGHT
     Route: 059
     Dates: start: 20121004

REACTIONS (3)
  - Back pain [Unknown]
  - Vaginal haemorrhage [Unknown]
  - Ovarian cyst [Unknown]

NARRATIVE: CASE EVENT DATE: 201407
